FAERS Safety Report 11039771 (Version 1)
Quarter: 2015Q2

REPORT INFORMATION
  Report Type: Spontaneous
  Country: US (occurrence: US)
  Receive Date: 20150416
  Receipt Date: 20150416
  Transmission Date: 20150821
  Serious: No
  Sender: FDA-Public Use
  Company Number: US-ENDO PHARMACEUTICALS INC.-FURO20150001

PATIENT
  Age: 57 Year
  Sex: Female
  Weight: 74.46 kg

DRUGS (2)
  1. FUROSEMIDE TABLETS 40MG [Suspect]
     Active Substance: FUROSEMIDE
     Indication: PRODUCT USED FOR UNKNOWN INDICATION
     Route: 065
     Dates: start: 20141214, end: 20150106
  2. PREDNISONE TABLETS [Concomitant]
     Active Substance: PREDNISONE
     Indication: ASTHMA

REACTIONS (2)
  - Swelling face [Recovered/Resolved]
  - Urticaria [Recovered/Resolved]

NARRATIVE: CASE EVENT DATE: 20150106
